FAERS Safety Report 4767752-2 (Version None)
Quarter: 2005Q3

REPORT INFORMATION
  Report Type: 
  Country: None (occurrence: None)
  Receive Date: 20050912
  Receipt Date: 20050830
  Transmission Date: 20060218
  Serious: Yes (Death)
  Sender: FDA-Public Use
  Company Number: 2005124366

PATIENT
  Age: 42 Year
  Sex: Male

DRUGS (5)
  1. IRINOTECAN HCL [Suspect]
     Indication: RECTAL CANCER
     Dosage: 80 MG (1 D), INTRAVENOUS
     Route: 042
     Dates: start: 20050809, end: 20050809
  2. IRINOTECAN HCL [Suspect]
     Indication: RECTAL CANCER
     Dosage: 80 MG (1 D), INTRAVENOUS
     Route: 042
     Dates: start: 20050816, end: 20050816
  3. FLUOROURACIL [Suspect]
     Indication: RECTAL CANCER
     Dosage: 850 MG (1 D),
     Dates: start: 20050809, end: 20050809
  4. FLUOROURACIL [Suspect]
     Indication: RECTAL CANCER
     Dosage: 850 MG (1 D),
     Dates: start: 20050816, end: 20050816
  5. CALCIUM LEVOFOLINATE (CALCIUM LEVOFOLINATE) [Suspect]
     Indication: RECTAL CANCER
     Dosage: 350 MG (INTERMITTENT), INTRAVENOUS
     Route: 042
     Dates: start: 20050809, end: 20050816

REACTIONS (8)
  - BONE MARROW DEPRESSION [None]
  - DIARRHOEA [None]
  - DISSEMINATED INTRAVASCULAR COAGULATION [None]
  - MULTI-ORGAN FAILURE [None]
  - NEUTROPHIL COUNT DECREASED [None]
  - PLATELET COUNT DECREASED [None]
  - STOMATITIS [None]
  - WHITE BLOOD CELL COUNT DECREASED [None]
